FAERS Safety Report 15504671 (Version 1)
Quarter: 2018Q4

REPORT INFORMATION
  Report Type: Spontaneous
  Country: US (occurrence: US)
  Receive Date: 20181009
  Receipt Date: 20181009
  Transmission Date: 20190205
  Serious: No
  Sender: FDA-Public Use
  Company Number: None

PATIENT
  Age: 56 Year
  Sex: Male

DRUGS (1)
  1. OTEZLA [Suspect]
     Active Substance: APREMILAST
     Indication: PSORIASIS
     Dosage: ?          OTHER DOSE:OTALA 30MG;?
     Route: 048
     Dates: start: 20180730, end: 20180927

REACTIONS (2)
  - Abdominal discomfort [None]
  - Nausea [None]

NARRATIVE: CASE EVENT DATE: 20180901
